FAERS Safety Report 6963914-4 (Version None)
Quarter: 2010Q3

REPORT INFORMATION
  Report Type: 
  Country: None (occurrence: None)
  Receive Date: 20100902
  Receipt Date: 20100827
  Transmission Date: 20110219
  Serious: Yes (Death, Life-Threatening, Hospitalization)
  Sender: FDA-Public Use
  Company Number: JP-AMGEN-QUU423824

PATIENT
  Age: 74 Year
  Sex: Female

DRUGS (5)
  1. ENBREL [Suspect]
     Indication: RHEUMATOID ARTHRITIS
     Route: 058
     Dates: start: 20060601
  2. ENBREL [Suspect]
     Route: 058
     Dates: start: 20060801, end: 20061201
  3. ENBREL [Suspect]
     Route: 058
     Dates: start: 20070401
  4. ENBREL [Suspect]
     Route: 058
     Dates: start: 20080301
  5. TACROLIMUS [Concomitant]
     Dosage: NOT PROVIDED
     Route: 048

REACTIONS (2)
  - GASTRIC CANCER [None]
  - METASTASIS [None]
